FAERS Safety Report 10021923 (Version 1)
Quarter: 2014Q1

REPORT INFORMATION
  Report Type: Spontaneous
  Country: US (occurrence: None)
  Receive Date: 20140318
  Receipt Date: 20140318
  Transmission Date: 20141002
  Serious: Yes (Life-Threatening, Other)
  Sender: FDA-Public Use
  Company Number: None

PATIENT
  Age: 70 Year
  Sex: Female
  Weight: 66.68 kg

DRUGS (1)
  1. RECLAST/ZOLEDRONIC ACID [Suspect]
     Indication: OSTEOPOROSIS
     Dates: start: 20140224

REACTIONS (9)
  - Chills [None]
  - Hyperhidrosis [None]
  - Heart rate increased [None]
  - Pyrexia [None]
  - Confusional state [None]
  - Asthenia [None]
  - Bone pain [None]
  - Arthralgia [None]
  - Rhinorrhoea [None]
